FAERS Safety Report 9902973 (Version 1)
Quarter: 2014Q1

REPORT INFORMATION
  Report Type: Spontaneous
  Country: GR (occurrence: GR)
  Receive Date: 20140217
  Receipt Date: 20140217
  Transmission Date: 20141002
  Serious: Yes (Hospitalization)
  Sender: FDA-Public Use
  Company Number: PHHY2014GR017770

PATIENT
  Age: 84 Year
  Sex: Female

DRUGS (4)
  1. STALEVO [Suspect]
     Dosage: UNK UKN, UNK
  2. STALEVO [Suspect]
     Dosage: 1 DF, (200/50/12.5 MG), DAILY
  3. MADOPAR [Suspect]
     Dosage: UNK UKN, UNK
  4. SINEMET [Suspect]
     Dosage: UNK UKN, UNK

REACTIONS (2)
  - Decreased appetite [Unknown]
  - Abdominal pain upper [Not Recovered/Not Resolved]
